FAERS Safety Report 13660657 (Version 1)
Quarter: 2017Q2

REPORT INFORMATION
  Report Type: Not Available
  Country: PR (occurrence: US)
  Receive Date: 20170616
  Receipt Date: 20170616
  Transmission Date: 20170830
  Serious: No
  Sender: FDA-Public Use
  Company Number: PR-HISAMITSU-2017-US-004341

PATIENT
  Age: 80 Year
  Sex: Female
  Weight: 81.19 kg

DRUGS (1)
  1. SALONPAS PAIN RELIEF [Suspect]
     Active Substance: MENTHOL\METHYL SALICYLATE
     Dosage: 1 PATCH TO UPPER THIGH
     Route: 061
     Dates: start: 20170421, end: 20170421

REACTIONS (2)
  - Application site swelling [Unknown]
  - Intentional product misuse [Unknown]

NARRATIVE: CASE EVENT DATE: 20170421
